FAERS Safety Report 9183351 (Version 1)
Quarter: 2013Q1

REPORT INFORMATION
  Report Type: Spontaneous
  Country: US (occurrence: US)
  Receive Date: 20130322
  Receipt Date: 20130322
  Transmission Date: 20140127
  Serious: No
  Sender: FDA-Public Use
  Company Number: US-009507513-1303USA006709

PATIENT
  Sex: Male

DRUGS (5)
  1. REBETOL [Suspect]
     Indication: PRODUCT USED FOR UNKNOWN INDICATION
     Dosage: 200 MG, DAILY
     Route: 048
  2. VICTRELIS [Suspect]
     Indication: PRODUCT USED FOR UNKNOWN INDICATION
     Dosage: 4 DF, TID
     Route: 048
  3. PEGINTERFERON ALFA-2A [Suspect]
     Indication: PRODUCT USED FOR UNKNOWN INDICATION
  4. GINSENG (UNSPECIFIED) [Concomitant]
  5. VITAMIN D (UNSPECIFIED) [Concomitant]

REACTIONS (3)
  - Insomnia [Unknown]
  - Fatigue [Unknown]
  - Rash erythematous [Unknown]
